FAERS Safety Report 5733362-3 (Version None)
Quarter: 2008Q2

REPORT INFORMATION
  Report Type: 
  Country: None (occurrence: None)
  Receive Date: 20080509
  Receipt Date: 20080505
  Transmission Date: 20081010
  Serious: Yes (Other)
  Sender: FDA-Public Use
  Company Number: US-BAYER-200815854NA

PATIENT
  Age: 17 Year
  Sex: Female
  Weight: 59 kg

DRUGS (3)
  1. YASMIN [Suspect]
     Indication: CONTRACEPTION
     Route: 048
  2. CLARAVIS [Suspect]
     Route: 048
     Dates: start: 20071128
  3. ACCUTANE [Suspect]
     Indication: ACNE
     Route: 048
     Dates: start: 20071127, end: 20071212

REACTIONS (4)
  - ABDOMINAL DISCOMFORT [None]
  - AEROMONA INFECTION [None]
  - HAEMATOCHEZIA [None]
  - URINARY TRACT INFECTION [None]
